FAERS Safety Report 23701298 (Version 2)
Quarter: 2024Q2

REPORT INFORMATION
  Report Type: Report from Study
  Country: US (occurrence: US)
  Receive Date: 20240403
  Receipt Date: 20240415
  Transmission Date: 20240716
  Serious: No
  Sender: FDA-Public Use
  Company Number: US-ABBVIE-5703366

PATIENT
  Age: 59 Year
  Sex: Female
  Weight: 136 kg

DRUGS (1)
  1. SKYRIZI [Suspect]
     Active Substance: RISANKIZUMAB-RZAA
     Indication: Psoriasis
     Route: 058
     Dates: start: 20230622

REACTIONS (1)
  - Nail operation [Recovered/Resolved]

NARRATIVE: CASE EVENT DATE: 20240325
